FAERS Safety Report 5565154-2 (Version None)
Quarter: 2007Q4

REPORT INFORMATION
  Report Type: 
  Country: None (occurrence: None)
  Receive Date: 20071213
  Receipt Date: 20071206
  Transmission Date: 20080405
  Serious: Yes (Other)
  Sender: FDA-Public Use
  Company Number: CHPA2007US13354

PATIENT
  Age: 53 Year
  Sex: Female

DRUGS (1)
  1. EXCEDRIN SINUS HEADACHE (NCH) (PARACETAMOL, PHENYLEPHRINE) CAPLET [Suspect]
     Indication: SINUS HEADACHE
     Dosage: ORAL
     Route: 048

REACTIONS (1)
  - DRUG DEPENDENCE [None]
